FAERS Safety Report 24845653 (Version 1)
Quarter: 2025Q1

REPORT INFORMATION
  Report Type: Report from Study
  Country: CA (occurrence: CA)
  Receive Date: 20250115
  Receipt Date: 20250115
  Transmission Date: 20250408
  Serious: No
  Sender: ROCHE
  Company Number: CA-ROCHE-2245120

PATIENT
  Age: 41 Year
  Sex: Female

DRUGS (3)
  1. OCREVUS [Suspect]
     Active Substance: OCRELIZUMAB
     Indication: Relapsing-remitting multiple sclerosis
     Dosage: 300 MG AT DAY 0 AND 14, THEN 600 MG EVERY 6 MONTH ;ONGOING: YES
     Route: 042
     Dates: start: 20190109
  2. NAPROSYN [Concomitant]
     Active Substance: NAPROXEN
     Indication: Pain
     Dates: start: 2016
  3. CLARITIN [Concomitant]
     Active Substance: LORATADINE

REACTIONS (4)
  - Infusion related reaction [Unknown]
  - COVID-19 [Recovering/Resolving]
  - Migraine [Recovered/Resolved]
  - Insomnia [Recovered/Resolved]

NARRATIVE: CASE EVENT DATE: 20190109
